FAERS Safety Report 7069915-2 (Version None)
Quarter: 2010Q4

REPORT INFORMATION
  Report Type: 
  Country: None (occurrence: None)
  Receive Date: 20101028
  Receipt Date: 20100622
  Transmission Date: 20110411
  Serious: No
  Sender: FDA-Public Use
  Company Number: US-WYE-H16125810

PATIENT
  Sex: Female
  Weight: 65.38 kg

DRUGS (8)
  1. PANTOPRAZOLE SODIUM [Suspect]
     Indication: GASTROOESOPHAGEAL REFLUX DISEASE
     Dates: start: 20100601, end: 20100601
  2. DIAZEPAM [Concomitant]
  3. ALLEGRA [Concomitant]
  4. CITRUCEL [Concomitant]
  5. NASONEX [Concomitant]
  6. ONE-A-DAY [Concomitant]
  7. ATENOLOL [Concomitant]
  8. TUMS [Concomitant]

REACTIONS (2)
  - GASTRIC DISORDER [None]
  - INSOMNIA [None]
